FAERS Safety Report 5535840-9 (Version None)
Quarter: 2007Q4

REPORT INFORMATION
  Report Type: 
  Country: None (occurrence: None)
  Receive Date: 20071204
  Receipt Date: 20071127
  Transmission Date: 20080405
  Serious: Yes (Hospitalization)
  Sender: FDA-Public Use
  Company Number: TPA2007A01736

PATIENT
  Age: 40 Year
  Sex: Female

DRUGS (10)
  1. ROZEREM [Suspect]
     Indication: INSOMNIA
     Dosage: 8 MG, QHS, PER ORAL
     Route: 048
     Dates: start: 20070813, end: 20070814
  2. ZOLOFT [Concomitant]
  3. TOPAMAX [Concomitant]
  4. SEROQUEL [Concomitant]
  5. PERIACTIN [Concomitant]
  6. GEODON [Concomitant]
  7. PEPCID [Concomitant]
  8. COPAXONE [Concomitant]
  9. COLACE (DOCUSATE SODIUM) [Concomitant]
  10. CATAFLAM [Concomitant]

REACTIONS (4)
  - ANXIETY [None]
  - EPISTAXIS [None]
  - PANIC ATTACK [None]
  - TREMOR [None]
